FAERS Safety Report 9387880 (Version 1)
Quarter: 2013Q3

REPORT INFORMATION
  Report Type: Spontaneous
  Country: CA (occurrence: None)
  Receive Date: 20130703
  Receipt Date: 20130703
  Transmission Date: 20140515
  Serious: Yes (Hospitalization, Other)
  Sender: FDA-Public Use
  Company Number: JPI-P-033222

PATIENT
  Age: 42 Year
  Sex: Male

DRUGS (1)
  1. XYREM [Suspect]
     Indication: CATAPLEXY
     Dosage: (2.25 GM, 1 IN 1 D)
     Route: 048
     Dates: start: 20120516, end: 20120517

REACTIONS (6)
  - Overdose [None]
  - Loss of consciousness [None]
  - Coma [None]
  - Pneumonia aspiration [None]
  - Vomiting [None]
  - Drug abuse [None]
